FAERS Safety Report 12398504 (Version 1)
Quarter: 2016Q2

REPORT INFORMATION
  Report Type: Spontaneous
  Country: NL (occurrence: NL)
  Receive Date: 20160524
  Receipt Date: 20160524
  Transmission Date: 20160815
  Serious: Yes (Other)
  Sender: FDA-Public Use
  Company Number: NL-HQ SPECIALTY-NL-2016INT000288

PATIENT
  Age: 2 Year
  Sex: Female

DRUGS (6)
  1. CYCLOPHOSPHAMIDE. [Suspect]
     Active Substance: CYCLOPHOSPHAMIDE
     Indication: YOLK SAC TUMOUR SITE UNSPECIFIED
     Dosage: UNK
     Dates: start: 1983
  2. TENIPOSIDE. [Suspect]
     Active Substance: TENIPOSIDE
     Indication: YOLK SAC TUMOUR SITE UNSPECIFIED
     Dosage: UNK
     Dates: start: 1983
  3. BLEOMYCIN [Suspect]
     Active Substance: BLEOMYCIN SULFATE
     Indication: YOLK SAC TUMOUR SITE UNSPECIFIED
     Dosage: UNK
     Dates: start: 1983
  4. ACTINOMYCIN D [Suspect]
     Active Substance: DACTINOMYCIN
     Indication: YOLK SAC TUMOUR SITE UNSPECIFIED
     Dosage: UNK
     Dates: start: 1983
  5. CISPLATIN. [Suspect]
     Active Substance: CISPLATIN
     Indication: YOLK SAC TUMOUR SITE UNSPECIFIED
     Dosage: UNK
     Dates: start: 1983
  6. VINBLASTINE [Suspect]
     Active Substance: VINBLASTINE
     Indication: YOLK SAC TUMOUR SITE UNSPECIFIED
     Dosage: UNK
     Dates: start: 1983

REACTIONS (1)
  - Deafness [Unknown]
